FAERS Safety Report 13285661 (Version 1)
Quarter: 2017Q1

REPORT INFORMATION
  Report Type: Spontaneous
  Country: CH (occurrence: CH)
  Receive Date: 20170302
  Receipt Date: 20170302
  Transmission Date: 20170428
  Serious: Yes (Other)
  Sender: FDA-Public Use
  Company Number: CH-TEVA-744171ISR

PATIENT
  Age: 44 Year
  Sex: Female

DRUGS (6)
  1. INFLIXIMAB [Suspect]
     Active Substance: INFLIXIMAB
     Indication: BEHCET^S SYNDROME
     Route: 065
     Dates: start: 2008
  2. PREDNISONE. [Suspect]
     Active Substance: PREDNISONE
     Indication: BEHCET^S SYNDROME
     Route: 065
     Dates: start: 2008
  3. COLCHICINE. [Concomitant]
     Active Substance: COLCHICINE
     Dates: start: 2014
  4. INTERFERON ALPHA-2A [Concomitant]
     Active Substance: PEGINTERFERON ALFA-2A
     Dates: start: 2012, end: 201304
  5. CICLOSPORIN [Suspect]
     Active Substance: CYCLOSPORINE
     Indication: BEHCET^S SYNDROME
     Route: 065
     Dates: start: 2008
  6. METHOTREXATE. [Suspect]
     Active Substance: METHOTREXATE
     Indication: BEHCET^S SYNDROME
     Route: 065
     Dates: start: 2008

REACTIONS (1)
  - Vulval cancer stage 0 [Recovered/Resolved]
